FAERS Safety Report 10088992 (Version 7)
Quarter: 2014Q3

REPORT INFORMATION
  Report Type: Spontaneous
  Country: BR (occurrence: BR)
  Receive Date: 20140421
  Receipt Date: 20140812
  Transmission Date: 20150326
  Serious: Yes (Other)
  Sender: FDA-Public Use
  Company Number: BR-AMGEN INC.-BRASP2014028636

PATIENT
  Age: 54 Year
  Sex: Female
  Weight: 83 kg

DRUGS (11)
  1. ENBREL [Suspect]
     Active Substance: ETANERCEPT
     Indication: ANKYLOSING SPONDYLITIS
     Dosage: 50 MG, WEEKLY
     Route: 058
     Dates: start: 201401
  2. ENBREL [Suspect]
     Active Substance: ETANERCEPT
     Indication: RHEUMATOID ARTHRITIS
     Dosage: 25 MG, WEEKLY
     Route: 058
     Dates: start: 201404, end: 201404
  3. LIBIAN 28 [Concomitant]
     Indication: HORMONE REPLACEMENT THERAPY
     Dosage: 25 MG, QD
     Dates: start: 2013
  4. CALCIUM W/VITAMIN D                /07457301/ [Concomitant]
     Dosage: UNK
  5. MELOXICAM. [Concomitant]
     Active Substance: MELOXICAM
     Indication: PAIN
     Dosage: 1 TABLET, 2X/DAY
     Dates: start: 2010
  6. OMEPRAZOLE. [Concomitant]
     Active Substance: OMEPRAZOLE
     Indication: GASTRIC DISORDER
     Dosage: 1 TABLET, DAILY
     Dates: start: 2006
  7. VITAMIN D                          /00107901/ [Concomitant]
     Active Substance: ERGOCALCIFEROL
     Indication: VITAMIN SUPPLEMENTATION
     Dosage: 8 DROPS DAILY
     Dates: start: 2011
  8. CALCIUM [Concomitant]
     Active Substance: CALCIUM
     Indication: MINERAL SUPPLEMENTATION
     Dosage: 1 CAPSULE, DAILY
     Dates: start: 201312
  9. MELOXICAM. [Concomitant]
     Active Substance: MELOXICAM
     Indication: ANTIINFLAMMATORY THERAPY
     Dosage: UNK
  10. ENBREL [Suspect]
     Active Substance: ETANERCEPT
     Dosage: UNK
     Route: 065
  11. PURAN [Concomitant]
     Active Substance: LEVOTHYROXINE SODIUM
     Indication: HYPOTHYROIDISM
     Dosage: 50 MG, 1X/DAY
     Dates: start: 2011

REACTIONS (12)
  - Generalised erythema [Recovered/Resolved]
  - Suffocation feeling [Recovered/Resolved]
  - Cough [Recovered/Resolved]
  - Pruritus generalised [Recovered/Resolved]
  - Laryngeal oedema [Recovered/Resolved]
  - Rash [Recovered/Resolved]
  - Drug ineffective [Recovered/Resolved]
  - Dyspnoea [Recovered/Resolved]
  - Dysphonia [Recovered/Resolved]
  - Balance disorder [Recovered/Resolved]
  - Hypersensitivity [Unknown]
  - Pain [Recovered/Resolved]

NARRATIVE: CASE EVENT DATE: 201404
